FAERS Safety Report 23217478 (Version 2)
Quarter: 2024Q1

REPORT INFORMATION
  Report Type: Spontaneous
  Country: US (occurrence: US)
  Receive Date: 20231122
  Receipt Date: 20240227
  Transmission Date: 20240410
  Serious: Yes (Life-Threatening, Hospitalization)
  Sender: FDA-Public Use
  Company Number: US-MYLANLABS-2023M1123600

PATIENT
  Age: 52 Year
  Sex: Female

DRUGS (3)
  1. LITHIUM [Suspect]
     Active Substance: LITHIUM
     Indication: Bipolar I disorder
     Dosage: 900 MILLIGRAM, HS (AT NIGHT)
     Route: 065
  2. LAMOTRIGINE [Concomitant]
     Active Substance: LAMOTRIGINE
     Indication: Bipolar I disorder
     Dosage: 125 MILLIGRAM, BID
     Route: 065
  3. FLUPHENAZINE [Concomitant]
     Active Substance: FLUPHENAZINE
     Indication: Bipolar I disorder
     Dosage: 5 MILLIGRAM, BID
     Route: 065

REACTIONS (5)
  - Toxicity to various agents [Not Recovered/Not Resolved]
  - Toxic encephalopathy [Not Recovered/Not Resolved]
  - Brain injury [Not Recovered/Not Resolved]
  - Acute kidney injury [Recovering/Resolving]
  - Rhabdomyolysis [Recovering/Resolving]
